FAERS Safety Report 11330509 (Version 1)
Quarter: 2015Q3

REPORT INFORMATION
  Report Type: Spontaneous
  Country: US (occurrence: US)
  Receive Date: 20150803
  Receipt Date: 20150803
  Transmission Date: 20151125
  Serious: No
  Sender: FDA-Public Use
  Company Number: US-TAKEDA-2015TUS001530

PATIENT
  Sex: Female

DRUGS (6)
  1. ALPRAZOLAM. [Concomitant]
     Active Substance: ALPRAZOLAM
     Dosage: UNK
     Route: 048
  2. AMOXICILLIN. [Concomitant]
     Active Substance: AMOXICILLIN
     Indication: KIDNEY INFECTION
     Dosage: UNK
     Route: 048
  3. CEPHALEXIN                         /00145501/ [Concomitant]
     Active Substance: CEPHALEXIN
     Indication: KIDNEY INFECTION
     Dosage: UNK
     Route: 048
  4. PREDNISONE. [Concomitant]
     Active Substance: PREDNISONE
     Indication: PLEURISY
     Dosage: UNK
     Route: 048
  5. COLCRYS [Suspect]
     Active Substance: COLCHICINE
     Indication: PLEURISY
     Dosage: 0.6 MG, BID
     Route: 048
     Dates: end: 20150206
  6. CIPROFLOXACIN. [Concomitant]
     Active Substance: CIPROFLOXACIN
     Indication: KIDNEY INFECTION
     Dosage: UNK
     Route: 048

REACTIONS (3)
  - Musculoskeletal chest pain [Recovering/Resolving]
  - Neuromuscular toxicity [Recovering/Resolving]
  - Back pain [Recovering/Resolving]
